FAERS Safety Report 5028333-9 (Version None)
Quarter: 2006Q2

REPORT INFORMATION
  Report Type: 
  Country: None (occurrence: None)
  Receive Date: 20060613
  Receipt Date: 20060602
  Transmission Date: 20061013
  Serious: No
  Sender: FDA-Public Use
  Company Number: 225467

PATIENT
  Age: 42 Year
  Sex: Female
  Weight: 73.9 kg

DRUGS (4)
  1. XOLAIR [Suspect]
     Indication: ASTHMA
     Dosage: 375 MG, 1/MONTH, SUBCUTANEOUS
     Route: 058
     Dates: start: 20050701
  2. FORADIL [Concomitant]
  3. QVAR 40 [Concomitant]
  4. SINGULAIR [Concomitant]

REACTIONS (1)
  - MULTIPLE SCLEROSIS [None]
